FAERS Safety Report 13981210 (Version 2)
Quarter: 2017Q4

REPORT INFORMATION
  Report Type: Spontaneous
  Country: ES (occurrence: ES)
  Receive Date: 20170918
  Receipt Date: 20171124
  Transmission Date: 20180321
  Serious: Yes (Other)
  Sender: FDA-Public Use
  Company Number: ES-SUN PHARMACEUTICAL INDUSTRIES LTD-2017R1-149987

PATIENT
  Age: 32 Year
  Sex: Female

DRUGS (4)
  1. MAGNESIUM SULPHATE [Suspect]
     Active Substance: MAGNESIUM SULFATE
     Indication: HELLP SYNDROME
     Dosage: UNK
     Route: 042
  2. LOW MOLECULAR WEIGHT HEPARIN [Suspect]
     Active Substance: UNSPECIFIED INGREDIENT
     Indication: ANTICOAGULANT THERAPY
     Dosage: UNK
     Route: 065
  3. DEXAMETHASONE. [Suspect]
     Active Substance: DEXAMETHASONE
     Indication: HELLP SYNDROME
     Dosage: 4 MG, TID
     Route: 065
  4. ASPIRIN. [Suspect]
     Active Substance: ASPIRIN
     Indication: ANTICOAGULANT THERAPY
     Dosage: 100 MG, DAILY
     Route: 065

REACTIONS (9)
  - Exposure during pregnancy [Recovered/Resolved]
  - Brain abscess [Recovered/Resolved]
  - Premature delivery [Unknown]
  - Listeriosis [Recovered/Resolved]
  - Nervous system disorder [Recovered/Resolved]
  - Foetal growth restriction [Unknown]
  - Infarction [Recovering/Resolving]
  - Platelet count decreased [Recovered/Resolved]
  - Pyrexia [Recovered/Resolved]
